FAERS Safety Report 5567724-4 (Version None)
Quarter: 2007Q4

REPORT INFORMATION
  Report Type: 
  Country: None (occurrence: None)
  Receive Date: 20071207
  Receipt Date: 20071124
  Transmission Date: 20080405
  Serious: Yes (Other)
  Sender: FDA-Public Use
  Company Number: WSDF_00534

PATIENT
  Age: 34 Year
  Sex: Female

DRUGS (3)
  1. WINRHO SDF [Suspect]
     Dosage: 300 MCG ONCE; IM
     Route: 030
     Dates: start: 20050210, end: 20050210
  2. WINRHO SDF [Suspect]
     Dosage: 300 MCG ONCE; IM
     Route: 030
     Dates: start: 20050303, end: 20050303
  3. WINRHO SDF [Suspect]
     Dosage: 300 MCG; ONCE
     Dates: start: 20050316, end: 20050316

REACTIONS (4)
  - ABORTION SPONTANEOUS [None]
  - ANTI FACTOR XI ANTIBODY POSITIVE [None]
  - DRUG EXPOSURE DURING PREGNANCY [None]
  - PLACENTA PRAEVIA [None]
